FAERS Safety Report 5530033-3 (Version None)
Quarter: 2007Q4

REPORT INFORMATION
  Report Type: 
  Country: None (occurrence: None)
  Receive Date: 20071127
  Receipt Date: 20071115
  Transmission Date: 20080405
  Serious: Yes (Other)
  Sender: FDA-Public Use
  Company Number: 2007BI024324

PATIENT
  Sex: Female

DRUGS (1)
  1. AVONEX [Suspect]
     Dosage: IM
     Route: 030
     Dates: start: 20030101

REACTIONS (10)
  - ALOPECIA [None]
  - CARDIOMEGALY [None]
  - DRY SKIN [None]
  - HEART RATE INCREASED [None]
  - HEPATOMEGALY [None]
  - MULTIPLE SCLEROSIS [None]
  - NEPHROLITHIASIS [None]
  - PAIN IN EXTREMITY [None]
  - STOMATITIS [None]
  - WEIGHT INCREASED [None]
